FAERS Safety Report 6643818-7 (Version None)
Quarter: 2010Q1

REPORT INFORMATION
  Report Type: 
  Country: None (occurrence: None)
  Receive Date: 20100322
  Receipt Date: 20100312
  Transmission Date: 20100710
  Serious: Yes (Other)
  Sender: FDA-Public Use
  Company Number: US-JNJFOC-20100304718

PATIENT
  Sex: Male
  Weight: 77.11 kg

DRUGS (2)
  1. FENTANYL [Suspect]
     Indication: PAIN IN EXTREMITY
     Route: 062
  2. FENTANYL-100 [Suspect]
     Indication: PAIN IN EXTREMITY
     Route: 062

REACTIONS (5)
  - DEPRESSION [None]
  - MALAISE [None]
  - PRODUCT QUALITY ISSUE [None]
  - WITHDRAWAL SYNDROME [None]
  - WRONG TECHNIQUE IN DRUG USAGE PROCESS [None]
